FAERS Safety Report 4545726-4 (Version None)
Quarter: 2005Q1

REPORT INFORMATION
  Report Type: 
  Country: None (occurrence: None)
  Receive Date: 20050103
  Receipt Date: 20041210
  Transmission Date: 20050727
  Serious: Yes (Hospitalization)
  Sender: FDA-Public Use
  Company Number: USA041285901

PATIENT
  Sex: Male

DRUGS (2)
  1. HUMALOG [Suspect]
     Indication: DIABETES MELLITUS INSULIN-DEPENDENT
     Dates: start: 20010501
  2. LANTUS [Concomitant]

REACTIONS (2)
  - PANCREATECTOMY [None]
  - PHARMACEUTICAL PRODUCT COMPLAINT [None]
